FAERS Safety Report 18081766 (Version 1)
Quarter: 2020Q3

REPORT INFORMATION
  Report Type: Other
  Country: GB (occurrence: GB)
  Receive Date: 20200728
  Receipt Date: 20200728
  Transmission Date: 20201103
  Serious: Yes (Hospitalization)
  Sender: FDA-Public Use
  Company Number: GB-ROCHE-2440793

PATIENT
  Age: 58 Year
  Sex: Female

DRUGS (72)
  1. CITALOPRAM [Concomitant]
     Active Substance: CITALOPRAM HYDROBROMIDE
     Route: 048
     Dates: start: 2005
  2. MORPHINE SULPHATE [Concomitant]
     Active Substance: MORPHINE SULFATE
     Route: 048
     Dates: start: 20150516, end: 201611
  3. VITAMIN D3 [Concomitant]
     Active Substance: CHOLECALCIFEROL
     Route: 048
     Dates: start: 20150827
  4. PROMETHAZINE HYDROCHLORIDE. [Concomitant]
     Active Substance: PROMETHAZINE HYDROCHLORIDE
     Route: 048
  5. AMOXICILLIN. [Concomitant]
     Active Substance: AMOXICILLIN
     Route: 042
     Dates: start: 20191111, end: 20191115
  6. CLARITHROMYCIN. [Concomitant]
     Active Substance: CLARITHROMYCIN
     Route: 042
     Dates: start: 20190611, end: 20190611
  7. FUROSEMIDE. [Concomitant]
     Active Substance: FUROSEMIDE
     Route: 042
     Dates: start: 20200622, end: 20200623
  8. FUROSEMIDE. [Concomitant]
     Active Substance: FUROSEMIDE
     Route: 048
     Dates: start: 20200626
  9. BLOOD TRANSFUSION [Concomitant]
     Active Substance: HUMAN RED BLOOD CELL
     Dosage: 2 UNIT
     Route: 042
     Dates: start: 20191112, end: 20191112
  10. TAZOCIN [Concomitant]
     Active Substance: PIPERACILLIN SODIUM\TAZOBACTAM SODIUM
     Indication: PNEUMONIA
     Route: 042
     Dates: start: 20191221, end: 20191227
  11. TAZOCIN [Concomitant]
     Active Substance: PIPERACILLIN SODIUM\TAZOBACTAM SODIUM
     Indication: CELLULITIS
     Route: 042
     Dates: start: 20200202, end: 20200206
  12. RIFAMPICIN [Concomitant]
     Active Substance: RIFAMPIN
     Route: 048
     Dates: start: 20200212, end: 20200212
  13. CLINDAMYCIN. [Concomitant]
     Active Substance: CLINDAMYCIN
     Indication: CELLULITIS
     Route: 042
     Dates: start: 20200206, end: 20200212
  14. PARACETAMOL [Concomitant]
     Active Substance: ACETAMINOPHEN
     Route: 048
     Dates: start: 201504
  15. TINZAPARIN [Concomitant]
     Active Substance: TINZAPARIN
     Dosage: 20000 UNIT
     Route: 058
     Dates: start: 20190928
  16. MAGNESIUM ASPARTATE [Concomitant]
     Active Substance: MAGNESIUM ASPARTATE
     Route: 048
     Dates: start: 20191111
  17. FUROSEMIDE. [Concomitant]
     Active Substance: FUROSEMIDE
     Route: 042
     Dates: start: 20200623, end: 20200626
  18. AROMASIN [Suspect]
     Active Substance: EXEMESTANE
     Indication: BREAST CANCER
     Route: 048
     Dates: start: 20170428, end: 20180110
  19. LANSOPRAZOLE. [Concomitant]
     Active Substance: LANSOPRAZOLE
     Route: 048
  20. MORPHINE SULPHATE [Concomitant]
     Active Substance: MORPHINE SULFATE
     Indication: BACK PAIN
     Route: 050
     Dates: start: 201504, end: 20160516
  21. DENOSUMAB [Concomitant]
     Active Substance: DENOSUMAB
     Route: 058
     Dates: start: 20170604, end: 20170613
  22. LOPERAMIDE [Concomitant]
     Active Substance: LOPERAMIDE
     Indication: DIARRHOEA
     Dates: start: 201804, end: 2019
  23. BLOOD TRANSFUSION [Concomitant]
     Active Substance: HUMAN RED BLOOD CELL
     Dosage: 2 UNIT
     Route: 042
     Dates: start: 20200622, end: 20200622
  24. VANCOMYCIN [Concomitant]
     Active Substance: VANCOMYCIN
     Indication: CELLULITIS
     Route: 042
     Dates: start: 20200201, end: 20200206
  25. MORPHINE SULPHATE [Concomitant]
     Active Substance: MORPHINE SULFATE
     Route: 048
     Dates: start: 20171224
  26. ZOMORPH [Concomitant]
     Active Substance: MORPHINE SULFATE
     Route: 048
     Dates: start: 201611
  27. DIAZEPAM. [Concomitant]
     Active Substance: DIAZEPAM
     Indication: MUSCULOSKELETAL STIFFNESS
  28. HYOSCINE BUTYLBROMIDE [Concomitant]
     Active Substance: BUTYLSCOPOLAMINE BROMIDE
     Route: 048
     Dates: start: 20181222
  29. AMOXICILLIN. [Concomitant]
     Active Substance: AMOXICILLIN
     Indication: LOWER RESPIRATORY TRACT INFECTION
     Route: 048
     Dates: start: 20180701, end: 20180711
  30. AMOXICILLIN. [Concomitant]
     Active Substance: AMOXICILLIN
     Route: 048
     Dates: start: 20200626, end: 20200628
  31. CLARITHROMYCIN. [Concomitant]
     Active Substance: CLARITHROMYCIN
     Route: 048
     Dates: start: 20191219, end: 20191221
  32. TINZAPARIN [Concomitant]
     Active Substance: TINZAPARIN
     Route: 058
     Dates: start: 20200624, end: 20200624
  33. FUROSEMIDE. [Concomitant]
     Active Substance: FUROSEMIDE
     Route: 048
     Dates: start: 20191117
  34. MEROPENEM. [Concomitant]
     Active Substance: MEROPENEM
     Route: 042
     Dates: start: 20180813, end: 20180814
  35. CO?AMOXICLAV [Concomitant]
     Active Substance: AMOXICILLIN\CLAVULANATE POTASSIUM
     Route: 048
     Dates: start: 20190322
  36. DOXYCYCLINE. [Concomitant]
     Active Substance: DOXYCYCLINE
     Indication: PNEUMONIA
     Route: 048
     Dates: start: 20191223, end: 20191230
  37. MORPHINE SULPHATE [Concomitant]
     Active Substance: MORPHINE SULFATE
     Route: 048
     Dates: start: 201504
  38. GABAPENTIN. [Concomitant]
     Active Substance: GABAPENTIN
     Route: 048
  39. PROMETHAZINE HYDROCHLORIDE. [Concomitant]
     Active Substance: PROMETHAZINE HYDROCHLORIDE
     Route: 048
  40. AMOXICILLIN. [Concomitant]
     Active Substance: AMOXICILLIN
     Route: 042
     Dates: start: 20200622, end: 20200626
  41. CLARITHROMYCIN. [Concomitant]
     Active Substance: CLARITHROMYCIN
     Route: 048
     Dates: start: 20191111, end: 20191118
  42. CLARITHROMYCIN. [Concomitant]
     Active Substance: CLARITHROMYCIN
     Route: 048
     Dates: start: 20200622, end: 20200622
  43. COTRIMOXAZOLE [Concomitant]
     Active Substance: SULFAMETHOXAZOLE\TRIMETHOPRIM
     Route: 048
     Dates: start: 20181015, end: 20181022
  44. DERMOL [Concomitant]
     Active Substance: BENZALKONIUM CHLORIDE\CHLORHEXIDINE HYDROCHLORIDE\ISOPROPYL MYRISTATE\PARAFFIN
     Route: 061
  45. FUROSEMIDE. [Concomitant]
     Active Substance: FUROSEMIDE
     Indication: OEDEMA
     Route: 048
     Dates: start: 20191113, end: 20191116
  46. FEMARA [Suspect]
     Active Substance: LETROZOLE
     Indication: BREAST CANCER
     Route: 048
     Dates: start: 201507, end: 20170427
  47. LANSOPRAZOLE. [Concomitant]
     Active Substance: LANSOPRAZOLE
     Route: 048
     Dates: start: 2001
  48. CYCLIZINE [Concomitant]
     Active Substance: CYCLIZINE
     Route: 048
     Dates: start: 201507
  49. AMOXICILLIN. [Concomitant]
     Active Substance: AMOXICILLIN
     Route: 048
     Dates: start: 20180701, end: 20180711
  50. AMOXICILLIN. [Concomitant]
     Active Substance: AMOXICILLIN
     Route: 048
     Dates: start: 20191115, end: 20191118
  51. AMOXICILLIN. [Concomitant]
     Active Substance: AMOXICILLIN
     Route: 048
     Dates: start: 20191219, end: 20191221
  52. BLOOD TRANSFUSION [Concomitant]
     Active Substance: HUMAN RED BLOOD CELL
     Dosage: 3 UNIT
     Route: 042
     Dates: start: 20200501, end: 20200501
  53. LEVOTHYROXINE. [Concomitant]
     Active Substance: LEVOTHYROXINE
     Route: 048
     Dates: start: 20200311
  54. INHIXA [Concomitant]
     Active Substance: ENOXAPARIN SODIUM
     Route: 058
     Dates: start: 20190610, end: 20190623
  55. TRASTUZUMAB EMTANSINE [Suspect]
     Active Substance: ADO-TRASTUZUMAB EMTANSINE
     Indication: BREAST CANCER
     Route: 042
     Dates: start: 20200118
  56. GABAPENTIN. [Concomitant]
     Active Substance: GABAPENTIN
     Route: 048
     Dates: start: 20151231
  57. DENOSUMAB [Concomitant]
     Active Substance: DENOSUMAB
     Route: 058
     Dates: start: 20180118
  58. DIAZEPAM. [Concomitant]
     Active Substance: DIAZEPAM
     Indication: BACK PAIN
     Route: 048
     Dates: start: 20180105
  59. PEPTAC (UNITED KINGDOM) [Concomitant]
     Indication: DYSPEPSIA
     Route: 048
  60. AMOXICILLIN. [Concomitant]
     Active Substance: AMOXICILLIN
     Indication: OSTEOMYELITIS
     Route: 048
     Dates: start: 20170701, end: 20170706
  61. AMOXICILLIN. [Concomitant]
     Active Substance: AMOXICILLIN
     Route: 048
     Dates: start: 20190414
  62. CLARITHROMYCIN. [Concomitant]
     Active Substance: CLARITHROMYCIN
     Indication: LOWER RESPIRATORY TRACT INFECTION
     Route: 048
     Dates: start: 20180701, end: 20180711
  63. CLARITHROMYCIN. [Concomitant]
     Active Substance: CLARITHROMYCIN
     Route: 048
     Dates: start: 20180701, end: 20180711
  64. CLARITHROMYCIN. [Concomitant]
     Active Substance: CLARITHROMYCIN
     Route: 048
     Dates: start: 20190415
  65. PREDNISOLONE. [Concomitant]
     Active Substance: PREDNISOLONE
     Route: 048
     Dates: start: 20200625, end: 20200629
  66. FLUCLOXACILLIN [Concomitant]
     Active Substance: FLUCLOXACILLIN
     Route: 048
     Dates: start: 20180910, end: 20180912
  67. LINEZOLID. [Concomitant]
     Active Substance: LINEZOLID
     Indication: CELLULITIS
     Route: 042
     Dates: start: 20200206, end: 20200212
  68. TRASTUZUMAB. [Suspect]
     Active Substance: TRASTUZUMAB
     Indication: BREAST CANCER
     Route: 058
     Dates: start: 20150716, end: 20171222
  69. NAPROXEN. [Concomitant]
     Active Substance: NAPROXEN
     Route: 048
  70. BLOOD TRANSFUSION [Concomitant]
     Active Substance: HUMAN RED BLOOD CELL
     Dosage: 3 UNIT
     Route: 042
     Dates: start: 20200613, end: 20200613
  71. ZANAMIVIR [Concomitant]
     Active Substance: ZANAMIVIR
     Route: 045
     Dates: start: 20191218, end: 20191219
  72. FLUCLOXACILLIN [Concomitant]
     Active Substance: FLUCLOXACILLIN
     Route: 042
     Dates: start: 20180912, end: 20180915

REACTIONS (1)
  - Cellulitis [Recovered/Resolved]

NARRATIVE: CASE EVENT DATE: 20190927
